FAERS Safety Report 8893125 (Version 1)
Quarter: 2012Q4

REPORT INFORMATION
  Report Type: 
  Country: US (occurrence: US)
  Receive Date: 20121107
  Receipt Date: 20121107
  Transmission Date: 20130627
  Serious: No
  Sender: FDA-Public Use
  Company Number: US-AMGEN-USASP2011059045

PATIENT
  Age: 64 Year
  Sex: Female

DRUGS (9)
  1. ENBREL [Suspect]
     Indication: PRODUCT USED FOR UNKNOWN INDICATION
     Dosage: 50 mg, qwk
     Route: 058
  2. PREDNISONE [Concomitant]
  3. CELEBREX [Concomitant]
     Dosage: 200 mg, UNK
  4. DIOVAN [Concomitant]
     Dosage: 160 mg, UNK
  5. LEVOTHYROXIN [Concomitant]
     Dosage: 88 mug, UNK
  6. LEXAPRO [Concomitant]
     Dosage: 10 mg, UNK
  7. CALCIUM [Concomitant]
  8. VITAMIN D /00107901/ [Concomitant]
     Dosage: UNK unit, UNK
  9. MULTIVITAMIN                       /00097801/ [Concomitant]

REACTIONS (2)
  - Injection site bruising [Unknown]
  - Injection site pain [Unknown]
